FAERS Safety Report 5382589-1 (Version None)
Quarter: 2007Q3

REPORT INFORMATION
  Report Type: 
  Country: None (occurrence: None)
  Receive Date: 20070710
  Receipt Date: 20070629
  Transmission Date: 20080115
  Serious: Yes (Other)
  Sender: FDA-Public Use
  Company Number: PHBS2007US11172

PATIENT
  Age: 63 Year
  Sex: Male

DRUGS (7)
  1. PAMIDRONATE DISODIUM [Suspect]
     Indication: MULTIPLE MYELOMA
  2. ZOLEDRONIC ACID [Suspect]
     Indication: MULTIPLE MYELOMA
  3. OLMESARTAN MEDOXOMIL [Concomitant]
  4. DOXAZOSIN MESYLATE [Concomitant]
  5. GLIPIZIDE [Concomitant]
  6. METFORMIN [Concomitant]
  7. ROSIGLITAZONE MALEATE [Concomitant]

REACTIONS (10)
  - BONE DEBRIDEMENT [None]
  - BONE DISORDER [None]
  - DYSKINESIA [None]
  - EXCESSIVE GRANULATION TISSUE [None]
  - IMPAIRED HEALING [None]
  - OEDEMA MOUTH [None]
  - OSTEOMYELITIS [None]
  - OSTEONECROSIS [None]
  - PAIN IN JAW [None]
  - TOOTH EXTRACTION [None]
